FAERS Safety Report 7087137-6 (Version None)
Quarter: 2010Q4

REPORT INFORMATION
  Report Type: 
  Country: None (occurrence: None)
  Receive Date: 20101106
  Receipt Date: 20101027
  Transmission Date: 20110411
  Serious: No
  Sender: FDA-Public Use
  Company Number: US-WYE-H18411210

PATIENT
  Age: 32 Year
  Sex: Male
  Weight: 118.04 kg

DRUGS (1)
  1. ADVIL [Suspect]
     Route: 048
     Dates: start: 20101025, end: 20101025

REACTIONS (1)
  - SWELLING FACE [None]
